FAERS Safety Report 14169619 (Version 1)
Quarter: 2017Q4

REPORT INFORMATION
  Report Type: Spontaneous
  Country: US (occurrence: None)
  Receive Date: 20171107
  Receipt Date: 20171107
  Transmission Date: 20180321
  Serious: Yes (Other)
  Sender: FDA-Public Use
  Company Number: None

PATIENT
  Age: 66 Year
  Sex: Male

DRUGS (1)
  1. ALBUTEROL. [Suspect]
     Active Substance: ALBUTEROL
     Dates: start: 20171101

REACTIONS (5)
  - Dyspnoea [None]
  - Drug effect decreased [None]
  - Cough [None]
  - Product substitution issue [None]
  - Overdose [None]

NARRATIVE: CASE EVENT DATE: 20171107
